FAERS Safety Report 9758669 (Version 1)
Quarter: 2013Q4

REPORT INFORMATION
  Report Type: Spontaneous
  Country: US (occurrence: None)
  Receive Date: 20131216
  Receipt Date: 20131216
  Transmission Date: 20140711
  Serious: Yes (Other)
  Sender: FDA-Public Use
  Company Number: 2013US-67962

PATIENT
  Age: 16 Year
  Sex: Female

DRUGS (1)
  1. ABSORICA [Suspect]
     Indication: PRODUCT USED FOR UNKNOWN INDICATION
     Dosage: 30 MG, BID, UNKNOWN

REACTIONS (1)
  - Anxiety [None]
